FAERS Safety Report 6177866-0 (Version None)
Quarter: 2009Q2

REPORT INFORMATION
  Report Type: 
  Country: None (occurrence: None)
  Receive Date: 20090504
  Receipt Date: 20090114
  Transmission Date: 20091009
  Serious: No
  Sender: FDA-Public Use
  Company Number: US-ALEXION-A200900030

PATIENT
  Sex: Female

DRUGS (8)
  1. SOLIRIS [Suspect]
     Indication: PAROXYSMAL NOCTURNAL HAEMOGLOBINURIA
     Dosage: 600 MG, QWK
     Route: 042
     Dates: start: 20081017, end: 20081107
  2. SOLIRIS [Suspect]
     Dosage: 900 MG, Q2WK
     Route: 042
     Dates: start: 20081114
  3. DIGOXIN [Concomitant]
     Indication: ATRIAL FIBRILLATION
     Dosage: UNK
     Route: 048
  4. METOPROLOL TARTRATE [Concomitant]
     Indication: BLOOD PRESSURE
     Dosage: UNK
     Route: 048
  5. OMEPRAZOLE [Concomitant]
     Indication: ULCER
     Dosage: UNK
     Route: 048
  6. FOLIC ACID [Concomitant]
     Indication: PAROXYSMAL NOCTURNAL HAEMOGLOBINURIA
     Dosage: UNK
     Route: 048
  7. CALTRATE + D                       /00944201/ [Concomitant]
     Dosage: UNK
     Route: 048
  8. MULTIVITAMIN                       /00831701/ [Concomitant]
     Dosage: UNK
     Route: 048

REACTIONS (2)
  - CYSTITIS [None]
  - RHINORRHOEA [None]
